FAERS Safety Report 8992735 (Version 3)
Quarter: 2013Q1

REPORT INFORMATION
  Report Type: Report from Study
  Country: FI (occurrence: FI)
  Receive Date: 20130102
  Receipt Date: 20130114
  Transmission Date: 20140127
  Serious: Yes (Death, Hospitalization)
  Sender: FDA-Public Use
  Company Number: FI-ROCHE-1171900

PATIENT
  Age: 67 Year
  Sex: Female

DRUGS (2)
  1. BEVACIZUMAB [Suspect]
     Indication: OVARIAN CANCER
     Route: 065
     Dates: start: 20120718, end: 20121017
  2. PACLITAXEL [Concomitant]
     Route: 065

REACTIONS (1)
  - Deep vein thrombosis [Fatal]
